FAERS Safety Report 16065190 (Version 1)
Quarter: 2019Q1

REPORT INFORMATION
  Report Type: Spontaneous
  Country: JP (occurrence: JP)
  Receive Date: 20190313
  Receipt Date: 20190313
  Transmission Date: 20190418
  Serious: Yes (Death, Other)
  Sender: FDA-Public Use
  Company Number: JP-AMGEN-JPNSP2019037266

PATIENT
  Age: 27 Year
  Sex: Male

DRUGS (1)
  1. RANMARK [Suspect]
     Active Substance: DENOSUMAB
     Indication: OSTEOLYSIS
     Dosage: 120 MILLIGRAM
     Route: 058

REACTIONS (4)
  - Death [Fatal]
  - Off label use [Unknown]
  - Brain stem stroke [Unknown]
  - Osteomyelitis [Unknown]
